FAERS Safety Report 4430475-3 (Version None)
Quarter: 2004Q3

REPORT INFORMATION
  Report Type: 
  Country: None (occurrence: None)
  Receive Date: 20040721
  Receipt Date: 20040503
  Transmission Date: 20050211
  Serious: Yes (Disabling)
  Sender: FDA-Public Use
  Company Number: WAES 0405USA00120

PATIENT
  Age: 88 Year
  Sex: Female

DRUGS (5)
  1. VIOXX [Suspect]
     Indication: ARTHRITIS
     Dosage: 25 MG/DAILY/PO
     Route: 048
     Dates: start: 20040501, end: 20040501
  2. NORVASC [Concomitant]
  3. PLAVIX [Concomitant]
  4. XALATAN [Concomitant]
  5. ZIAC [Concomitant]

REACTIONS (2)
  - DIZZINESS [None]
  - NAUSEA [None]
